FAERS Safety Report 6240363-8 (Version None)
Quarter: 2009Q2

REPORT INFORMATION
  Report Type: 
  Country: None (occurrence: None)
  Receive Date: 20090623
  Receipt Date: 20080826
  Transmission Date: 20091009
  Serious: No
  Sender: FDA-Public Use
  Company Number: US-ASTRAZENECA-2008UW17519

PATIENT
  Age: 87 Year
  Sex: Female
  Weight: 53.1 kg

DRUGS (11)
  1. PULMICORT RESPULES [Suspect]
     Indication: OFF LABEL USE
     Route: 055
     Dates: start: 20080801
  2. XANAX [Concomitant]
     Dosage: HALF TABLET, AS NEEDED
  3. PEPCID [Concomitant]
  4. FENTANYL [Concomitant]
  5. ALLEGRA [Concomitant]
     Dosage: AS NEEDED
  6. HYDROCODONE BITARTRATE [Concomitant]
  7. IPRATROPIUM BROMIDE [Concomitant]
  8. MIALCOZIN [Concomitant]
  9. SINGULAIR [Concomitant]
  10. PAXIL [Concomitant]
  11. ALBUTEROL [Concomitant]

REACTIONS (1)
  - OEDEMA PERIPHERAL [None]
